FAERS Safety Report 9043519 (Version 1)
Quarter: 2013Q1

REPORT INFORMATION
  Report Type: Report from Study
  Country: US (occurrence: US)
  Receive Date: 20130129
  Receipt Date: 20130129
  Transmission Date: 20140127
  Serious: No
  Sender: FDA-Public Use
  Company Number: US-ABBOTT-12P-163-0909693-00

PATIENT
  Age: 67 Year
  Sex: Female

DRUGS (4)
  1. HUMIRA 40 MG/0.8 ML PEN [Suspect]
     Indication: RHEUMATOID ARTHRITIS
     Dates: start: 20120131
  2. OMEPRAZOLE [Concomitant]
     Indication: GASTRIC DISORDER
  3. METHOTREXATE [Concomitant]
     Indication: PRODUCT USED FOR UNKNOWN INDICATION
     Dosage: 2.5 MG X 6 WEEKLY
  4. ALPRAZOLAM [Concomitant]
     Indication: DRUG DEPENDENCE
     Dosage: 1/2 PILL AS REQUIRED

REACTIONS (3)
  - Scab [Recovering/Resolving]
  - Rash erythematous [Recovering/Resolving]
  - Injection site haemorrhage [Recovered/Resolved]
